FAERS Safety Report 12549023 (Version 2)
Quarter: 2016Q4

REPORT INFORMATION
  Report Type: Spontaneous
  Country: JP (occurrence: JP)
  Receive Date: 20160712
  Receipt Date: 20161102
  Transmission Date: 20170207
  Serious: Yes (Death, Hospitalization)
  Sender: FDA-Public Use
  Company Number: JP-PFIZER INC-2016334554

PATIENT
  Age: 77 Year
  Sex: Male

DRUGS (13)
  1. SELARA [Concomitant]
     Active Substance: EPLERENONE
     Dosage: UNK
  2. CARDENALIN [Concomitant]
     Active Substance: DOXAZOSIN MESYLATE
     Dosage: UNK
  3. TENELIA [Concomitant]
     Active Substance: TENELIGLIPTIN
     Dosage: UNK
  4. FLUITRAN [Concomitant]
     Active Substance: TRICHLORMETHIAZIDE
     Dosage: UNK
  5. URIADEC [Concomitant]
     Active Substance: TOPIROXOSTAT
     Indication: HYPERURICAEMIA
     Dosage: UNK
  6. RASILEZ [Concomitant]
     Active Substance: ALISKIREN
     Dosage: UNK
  7. AIMIX [Concomitant]
     Active Substance: AMLODIPINE BESYLATE\IRBESARTAN
     Dosage: UNK
  8. GLIMICRON [Concomitant]
     Active Substance: GLICLAZIDE
     Dosage: UNK
  9. LANTUS [Concomitant]
     Active Substance: INSULIN GLARGINE
     Dosage: UNK
  10. ADALAT [Concomitant]
     Active Substance: NIFEDIPINE
     Dosage: UNK
  11. MAINTATE [Concomitant]
     Active Substance: BISOPROLOL FUMARATE
     Dosage: UNK
  12. TANATRIL [Concomitant]
     Active Substance: IMIDAPRIL
     Dosage: UNK
  13. SEIBULE [Suspect]
     Active Substance: MIGLITOL
     Dosage: 75 MG, UNK
     Route: 048
     Dates: start: 20131011

REACTIONS (1)
  - Pancreatic neoplasm [Fatal]

NARRATIVE: CASE EVENT DATE: 20160301
